FAERS Safety Report 14890336 (Version 2)
Quarter: 2018Q2

REPORT INFORMATION
  Report Type: Spontaneous
  Country: US (occurrence: US)
  Receive Date: 20180514
  Receipt Date: 20180518
  Transmission Date: 20180711
  Serious: No
  Sender: FDA-Public Use
  Company Number: US-PFIZER INC-2018194024

PATIENT
  Age: 67 Year
  Sex: Male

DRUGS (1)
  1. REVATIO [Suspect]
     Active Substance: SILDENAFIL CITRATE
     Indication: SEXUAL DYSFUNCTION
     Dosage: 20 MG, (TAKE 1-5 TABLETS BY MOUTH APPROXIMATELY ONE HOUR BEFORE INTERCOURSE)
     Route: 048

REACTIONS (1)
  - Product use in unapproved indication [Unknown]
